FAERS Safety Report 5730858-5 (Version None)
Quarter: 2008Q2

REPORT INFORMATION
  Report Type: 
  Country: None (occurrence: None)
  Receive Date: 20080507
  Receipt Date: 20080428
  Transmission Date: 20081010
  Serious: Yes (Other)
  Sender: FDA-Public Use
  Company Number: CN-PFIZER INC-2008037186

PATIENT
  Age: 52 Year
  Sex: Female

DRUGS (1)
  1. MEDROL [Suspect]
     Indication: SYSTEMIC LUPUS ERYTHEMATOSUS
     Route: 048
     Dates: start: 20080201, end: 20080401

REACTIONS (3)
  - CENTRAL OBESITY [None]
  - FACE OEDEMA [None]
  - SKIN ATROPHY [None]
